FAERS Safety Report 11846416 (Version 1)
Quarter: 2015Q4

REPORT INFORMATION
  Report Type: Spontaneous
  Country: US (occurrence: US)
  Receive Date: 20151217
  Receipt Date: 20151217
  Transmission Date: 20160305
  Serious: Yes (Other)
  Sender: FDA-Public Use
  Company Number: US-IPCA LABORATORIES LIMITED-IPC201512-000835

PATIENT
  Age: 27 Year
  Sex: Female

DRUGS (2)
  1. METHIMAZOLE. [Suspect]
     Active Substance: METHIMAZOLE
  2. METOPROLOL TARTRATE. [Suspect]
     Active Substance: METOPROLOL TARTRATE
     Indication: SINUS TACHYCARDIA

REACTIONS (6)
  - Hypotension [Unknown]
  - Cardiac arrest [Recovered/Resolved]
  - Malaise [Unknown]
  - Product use issue [Unknown]
  - Hyperhidrosis [Unknown]
  - Dyspnoea [Unknown]
